FAERS Safety Report 10372851 (Version 2)
Quarter: 2014Q3

REPORT INFORMATION
  Report Type: Spontaneous
  Country: US (occurrence: US)
  Receive Date: 20140808
  Receipt Date: 20140808
  Transmission Date: 20150326
  Serious: Yes (Disabling)
  Sender: FDA-Public Use
  Company Number: US-BRISTOL-MYERS SQUIBB COMPANY-19520386

PATIENT
  Age: 86 Year
  Sex: Female
  Weight: 103 kg

DRUGS (4)
  1. SPRYCEL [Suspect]
     Active Substance: DASATINIB
     Indication: CHRONIC MYELOID LEUKAEMIA
     Dosage: SPRYCEL 100 MG TABS
     Route: 048
     Dates: start: 20130729, end: 20130826
  2. ATENOLOL. [Concomitant]
     Active Substance: ATENOLOL
     Dosage: TABLET
     Route: 048
  3. LIBRAX [Concomitant]
     Active Substance: CHLORDIAZEPOXIDE HYDROCHLORIDE\CLIDINIUM BROMIDE
     Dosage: 1 DF : 5MG-2.5MG?CAP
     Route: 048
  4. LISINOPRIL. [Concomitant]
     Active Substance: LISINOPRIL
     Dosage: TABLET
     Route: 048

REACTIONS (5)
  - Headache [Unknown]
  - Hypersensitivity [Unknown]
  - Malaise [Unknown]
  - Vomiting [Unknown]
  - Nausea [Unknown]

NARRATIVE: CASE EVENT DATE: 20131002
